FAERS Safety Report 6695004-2 (Version None)
Quarter: 2010Q2

REPORT INFORMATION
  Report Type: 
  Country: None (occurrence: None)
  Receive Date: 20100423
  Receipt Date: 20100412
  Transmission Date: 20101027
  Serious: Yes (Hospitalization, Other)
  Sender: FDA-Public Use
  Company Number: PHHY2010CN23954

PATIENT
  Age: 40 Year
  Sex: Female

DRUGS (2)
  1. PARLODEL [Suspect]
     Indication: AMENORRHOEA
     Dosage: UNK
  2. PARLODEL [Suspect]
     Indication: LACTATION DISORDER
     Dosage: 2.5 MG

REACTIONS (10)
  - ARTERIAL INJURY [None]
  - CEREBRAL INFARCTION [None]
  - CEREBRAL VENTRICLE DILATATION [None]
  - CEREBROSPINAL FLUID RHINORRHOEA [None]
  - ENCEPHALOCELE [None]
  - HAEMORRHAGE [None]
  - HEMIPLEGIA [None]
  - LOSS OF CONSCIOUSNESS [None]
  - OPERATIVE HAEMORRHAGE [None]
  - PITUITARY TUMOUR REMOVAL [None]
